FAERS Safety Report 12184022 (Version 3)
Quarter: 2016Q2

REPORT INFORMATION
  Report Type: Spontaneous
  Country: RU (occurrence: RU)
  Receive Date: 20160316
  Receipt Date: 20160418
  Transmission Date: 20160815
  Serious: Yes (Hospitalization, Congenital Anomaly)
  Sender: FDA-Public Use
  Company Number: PHHY2016RU033864

PATIENT
  Sex: Female

DRUGS (6)
  1. TEGRETOL CR [Suspect]
     Active Substance: CARBAMAZEPINE
     Indication: FOETAL EXPOSURE DURING PREGNANCY
     Dosage: MOTHER DOSE: 600 MG, BID
     Route: 064
  2. FOLIC ACID. [Suspect]
     Active Substance: FOLIC ACID
     Indication: FOETAL EXPOSURE DURING PREGNANCY
     Dosage: MOTHER DOSE: 4 MG/DAY
     Route: 064
  3. TEGRETOL CR [Suspect]
     Active Substance: CARBAMAZEPINE
     Dosage: MOTHER DOSE: 300 MG, QD IN THE EVENING
     Route: 064
  4. FRAXIPARINE [Suspect]
     Active Substance: NADROPARIN CALCIUM
     Indication: FOETAL EXPOSURE DURING PREGNANCY
     Route: 064
  5. ACTOVEGIN [Suspect]
     Active Substance: UNSPECIFIED INGREDIENT
     Indication: FOETAL EXPOSURE DURING PREGNANCY
     Route: 064
  6. DEXAMETHASONE. [Suspect]
     Active Substance: DEXAMETHASONE
     Indication: FOETAL EXPOSURE DURING PREGNANCY
     Route: 064

REACTIONS (18)
  - Hypertelorism of orbit [Recovering/Resolving]
  - Meningomyelocele [Unknown]
  - Transient tachypnoea of the newborn [Recovering/Resolving]
  - Ear malformation [Recovering/Resolving]
  - Restlessness [Recovering/Resolving]
  - Foetal exposure during pregnancy [Unknown]
  - Brain injury [Unknown]
  - Caudal regression syndrome [Unknown]
  - Anal fissure [Recovering/Resolving]
  - Low birth weight baby [Unknown]
  - Fatigue [Recovering/Resolving]
  - Dermal sinus [Recovering/Resolving]
  - Arachnodactyly [Recovering/Resolving]
  - Spina bifida [Unknown]
  - Premature baby [Unknown]
  - Autonomic nervous system imbalance [Recovering/Resolving]
  - High arched palate [Recovering/Resolving]
  - Tremor [Recovering/Resolving]
